FAERS Safety Report 4266786-4 (Version None)
Quarter: 2004Q1

REPORT INFORMATION
  Report Type: 
  Country: None (occurrence: None)
  Receive Date: 20040108
  Receipt Date: 20030630
  Transmission Date: 20041129
  Serious: No
  Sender: FDA-Public Use
  Company Number: US-BRISTOL-MYERS SQUIBB COMPANY-12315727

PATIENT
  Age: 81 Year
  Sex: Female

DRUGS (1)
  1. CARDIOLITE [Suspect]
     Indication: CARDIAC STRESS TEST
     Dosage: DOSAGE: 12.75 MCI FOR THE STRESS PORTION AND 32.8 MCI FOR THE REST PORTION  ROUTE: INJECTION
     Route: 051
     Dates: start: 20030606, end: 20030606

REACTIONS (2)
  - JAW DISORDER [None]
  - OEDEMA PERIPHERAL [None]
